FAERS Safety Report 20632949 (Version 4)
Quarter: 2022Q2

REPORT INFORMATION
  Report Type: Report from Study
  Country: RU (occurrence: RU)
  Receive Date: 20220324
  Receipt Date: 20220427
  Transmission Date: 20220721
  Serious: Yes (Hospitalization)
  Sender: FDA-Public Use
  Company Number: RU-GLAXOSMITHKLINE-RU2022051861

PATIENT
  Age: 70 Year
  Sex: Male
  Weight: 75 kg

DRUGS (11)
  1. NIRAPARIB [Suspect]
     Active Substance: NIRAPARIB
     Indication: Non-small cell lung cancer
     Dosage: DOSE AT CYCLE 1 - DAY 1
     Dates: start: 20211220
  2. NIRAPARIB [Suspect]
     Active Substance: NIRAPARIB
     Dosage: DOSE AT CYCLE 1 - DAY 15
     Dates: start: 20220104
  3. NIRAPARIB [Suspect]
     Active Substance: NIRAPARIB
     Dosage: DOSE AT CYCLE 2 - DAY 1
     Dates: start: 20220110
  4. NIRAPARIB [Suspect]
     Active Substance: NIRAPARIB
     Dosage: DOSE AT CYCLE 3 - DAY 1
     Dates: start: 20220131
  5. NIRAPARIB [Suspect]
     Active Substance: NIRAPARIB
     Dosage: DOSE AT CYCLE 4 - DAY 1
     Dates: start: 20220225
  6. NIRAPARIB [Suspect]
     Active Substance: NIRAPARIB
     Dosage: DOSE MODIFICATION FORM: ACTION TAKEN = DOSE INTERRUPTED / REASON = ADVERSE EVENT
     Dates: start: 20220225
  7. NIRAPARIB [Suspect]
     Active Substance: NIRAPARIB
     Dosage: DOSE MODIFICATION FORM: ACTION TAKEN = DOSE INTERRUPTED / REASON = ADVERSE EVENT
     Dates: start: 20220314
  8. PEMBROLIZUMAB [Suspect]
     Active Substance: PEMBROLIZUMAB
     Indication: Non-small cell lung cancer
     Dosage: DOSE AT CYCLE 1 - DAY 1
     Route: 042
     Dates: start: 20211220, end: 20211220
  9. PEMBROLIZUMAB [Suspect]
     Active Substance: PEMBROLIZUMAB
     Dosage: DOSE AT CYCLE 2 - DAY 1
     Route: 042
     Dates: start: 20220110, end: 20220110
  10. PEMBROLIZUMAB [Suspect]
     Active Substance: PEMBROLIZUMAB
     Dosage: DOSE AT CYCLE 3 - DAY 1
     Route: 042
     Dates: start: 20220131, end: 20220131
  11. PEMBROLIZUMAB [Suspect]
     Active Substance: PEMBROLIZUMAB
     Dosage: DOSE AT CYCLE 4 - DAY 1
     Route: 042
     Dates: start: 20220225, end: 20220225

REACTIONS (1)
  - Ischaemic cerebral infarction [Recovered/Resolved]

NARRATIVE: CASE EVENT DATE: 20220316
